FAERS Safety Report 8202869-1 (Version None)
Quarter: 2012Q1

REPORT INFORMATION
  Report Type: 
  Country: None (occurrence: None)
  Receive Date: 20120312
  Receipt Date: 20120312
  Transmission Date: 20120608
  Serious: Yes (Other)
  Sender: FDA-Public Use
  Company Number: None

PATIENT
  Sex: Female
  Weight: 78.017 kg

DRUGS (1)
  1. LATANOPROST [Suspect]
     Indication: GLAUCOMA
     Dosage: 1 GTT      OD
     Route: 047
     Dates: start: 20111101, end: 20120126

REACTIONS (3)
  - VITREOUS FLOATERS [None]
  - PRODUCT SUBSTITUTION ISSUE [None]
  - HYALOSIS ASTEROID [None]
